FAERS Safety Report 8881270 (Version 2)
Quarter: 2012Q4

REPORT INFORMATION
  Report Type: 
  Country: US (occurrence: US)
  Receive Date: 20121031
  Receipt Date: 20121102
  Transmission Date: 20130627
  Serious: Yes (Hospitalization, Other)
  Sender: FDA-Public Use
  Company Number: US-UCBSA-069761

PATIENT
  Age: 70 Year
  Sex: Female

DRUGS (4)
  1. PHENTERMINE [Suspect]
  2. METFORMIN [Concomitant]
  3. OMEPRAZOLE [Concomitant]
  4. CALCIUM PLUS VITAMIN D [Concomitant]

REACTIONS (3)
  - Ventricular fibrillation [Recovered/Resolved]
  - Arteriospasm coronary [Recovered/Resolved]
  - Loss of consciousness [Recovered/Resolved]
